FAERS Safety Report 4883824-6 (Version None)
Quarter: 2006Q1

REPORT INFORMATION
  Report Type: 
  Country: None (occurrence: None)
  Receive Date: 20060112
  Receipt Date: 20060102
  Transmission Date: 20060701
  Serious: Yes (Hospitalization, Other)
  Sender: FDA-Public Use
  Company Number: DE-GDP-0512561

PATIENT
  Age: 16 Year
  Sex: Female

DRUGS (2)
  1. DIFFERIN [Suspect]
     Dosage: 1 APP QD TP
     Route: 061
     Dates: start: 20051123, end: 20051208
  2. AKNEFUG MINO (MINOCYCLINE) [Concomitant]

REACTIONS (1)
  - OEDEMA PERIPHERAL [None]
